FAERS Safety Report 4277491-2 (Version None)
Quarter: 2004Q1

REPORT INFORMATION
  Report Type: 
  Country: None (occurrence: None)
  Receive Date: 20040122
  Receipt Date: 20031216
  Transmission Date: 20041129
  Serious: Yes (Hospitalization)
  Sender: FDA-Public Use
  Company Number: US-BRISTOL-MYERS SQUIBB COMPANY-12459228

PATIENT
  Age: 63 Year
  Sex: Male
  Weight: 118 kg

DRUGS (11)
  1. COUMADIN [Suspect]
     Indication: HEART VALVE REPLACEMENT
     Dosage: WEEKLY DOSE: 10 MG/DAY EXCEPT WED AND SAT 12.5 MG/DAY, USING 2.5 + 10 MG TABS.
     Route: 048
     Dates: start: 20000101, end: 20031211
  2. LASIX [Concomitant]
     Dosage: DOSE 40-120 MG TWICE DAILY.
  3. ZAROXOLYN [Concomitant]
  4. POTASSIUM [Concomitant]
  5. CELEBREX [Concomitant]
  6. OXYCONTIN [Concomitant]
  7. OXY-IR [Concomitant]
  8. LANOXIN [Concomitant]
  9. NEURONTIN [Concomitant]
  10. ATACAND [Concomitant]
  11. INSULIN [Concomitant]

REACTIONS (5)
  - CARDIAC FAILURE [None]
  - CATHETERISATION CARDIAC [None]
  - MITRAL VALVE DISEASE [None]
  - SKIN DISCOLOURATION [None]
  - WEIGHT DECREASED [None]
